FAERS Safety Report 9295118 (Version 1)
Quarter: 2013Q2

REPORT INFORMATION
  Report Type: Spontaneous
  Country: US (occurrence: None)
  Receive Date: 20130516
  Receipt Date: 20130516
  Transmission Date: 20140414
  Serious: Yes (Other)
  Sender: FDA-Public Use
  Company Number: None

PATIENT
  Age: 62 Year
  Sex: Male
  Weight: 81.65 kg

DRUGS (1)
  1. CLINDAMYCIN HCL [Suspect]
     Indication: TOOTH INFECTION
     Route: 048
     Dates: start: 20130111, end: 20130117

REACTIONS (6)
  - Diarrhoea haemorrhagic [None]
  - Mucous stools [None]
  - Diarrhoea [None]
  - Clostridium colitis [None]
  - Urticaria [None]
  - Fatigue [None]
